FAERS Safety Report 17080273 (Version 1)
Quarter: 2019Q4

REPORT INFORMATION
  Report Type: Spontaneous
  Country: GB (occurrence: GB)
  Receive Date: 20191127
  Receipt Date: 20191127
  Transmission Date: 20200122
  Serious: Yes (Life-Threatening)
  Sender: FDA-Public Use
  Company Number: GB-TEVA-2019-GB-1142106

PATIENT
  Age: 36 Year
  Sex: Female
  Weight: 62 kg

DRUGS (10)
  1. CELECOXIB. [Concomitant]
     Active Substance: CELECOXIB
     Dates: start: 20181017
  2. GABAPENTIN. [Interacting]
     Active Substance: GABAPENTIN
     Indication: PAIN
     Dosage: 300MG/ 6 DAYS
     Route: 048
     Dates: start: 20181017, end: 20181023
  3. PARECOXIB [Concomitant]
     Active Substance: PARECOXIB
  4. PARACETAMOL [Concomitant]
     Active Substance: ACETAMINOPHEN
     Dates: start: 20181017
  5. LONGTEC [Concomitant]
     Active Substance: OXYCODONE HYDROCHLORIDE
     Dosage: 10MG
     Route: 048
     Dates: start: 20181017
  6. APIXABAN [Concomitant]
     Active Substance: APIXABAN
     Dosage: 5MG/ DAY
     Route: 048
     Dates: start: 20181017
  7. DESMOPRESSIN ACETATE. [Suspect]
     Active Substance: DESMOPRESSIN ACETATE
     Dosage: 1.8MG/ DAY
     Route: 065
     Dates: start: 20181017, end: 20181023
  8. CODEINE [Concomitant]
     Active Substance: CODEINE
     Dates: start: 20181017
  9. ZOPICLONE [Concomitant]
     Active Substance: ZOPICLONE
  10. OMEPRAZOLE. [Concomitant]
     Active Substance: OMEPRAZOLE
     Dosage: 20MG
     Route: 048
     Dates: start: 20181017

REACTIONS (2)
  - Hyponatraemia [Unknown]
  - Drug interaction [Unknown]
